FAERS Safety Report 13371049 (Version 1)
Quarter: 2017Q1

REPORT INFORMATION
  Report Type: Spontaneous
  Country: SE (occurrence: SE)
  Receive Date: 20170324
  Receipt Date: 20170324
  Transmission Date: 20170429
  Serious: Yes (Other)
  Sender: FDA-Public Use
  Company Number: SE-MYLANLABS-2017M1018092

PATIENT

DRUGS (1)
  1. BISOMYL 2,5 MG FILMDRAGERADE TABLETTER [Suspect]
     Active Substance: BISOPROLOL
     Indication: HEART RATE INCREASED
     Dosage: 2.5 MG, QD

REACTIONS (3)
  - Suicidal ideation [Recovered/Resolved]
  - Depressed mood [Recovered/Resolved]
  - Personality change [Recovered/Resolved]
